FAERS Safety Report 10556218 (Version 6)
Quarter: 2015Q3

REPORT INFORMATION
  Report Type: Report from Study
  Country: DE (occurrence: DE)
  Receive Date: 20141031
  Receipt Date: 20150805
  Transmission Date: 20151125
  Serious: Yes (Death, Life-Threatening, Hospitalization, Other)
  Sender: FDA-Public Use
  Company Number: DE-ROCHE-1367446

PATIENT
  Age: 81 Year
  Sex: Female
  Weight: 80 kg

DRUGS (28)
  1. BEVACIZUMAB [Suspect]
     Active Substance: BEVACIZUMAB
     Dosage: DAY 1,15,29,43
     Route: 042
     Dates: start: 20131211, end: 20140207
  2. 5-FU [Suspect]
     Active Substance: FLUOROURACIL
     Indication: COLORECTAL CANCER
     Dosage: DAY 1,8,15,22,29,36
     Route: 042
     Dates: start: 20131211, end: 20140131
  3. LYRICA [Concomitant]
     Active Substance: PREGABALIN
     Route: 065
     Dates: start: 20140124
  4. FENTANYL. [Concomitant]
     Active Substance: FENTANYL
     Indication: PAIN
     Dosage: 25 UG/H
     Route: 065
     Dates: start: 20131022
  5. METRONIDAZOL [Concomitant]
     Active Substance: METRONIDAZOLE
     Route: 065
     Dates: start: 20131119, end: 20131123
  6. LOPERAMID [Concomitant]
     Active Substance: LOPERAMIDE
     Route: 065
     Dates: start: 20131118, end: 20131119
  7. AMPICILLIN [Concomitant]
     Active Substance: AMPICILLIN
     Route: 065
     Dates: start: 20140217, end: 20140218
  8. BEVACIZUMAB [Suspect]
     Active Substance: BEVACIZUMAB
     Indication: COLORECTAL CANCER
     Dosage: DAY 1
     Route: 042
     Dates: start: 20131014, end: 20131014
  9. NOVALGIN [Concomitant]
     Active Substance: METAMIZOLE SODIUM
     Indication: PAIN
     Dosage: 1-1-1-1
     Route: 048
  10. ZOFRAN [Concomitant]
     Active Substance: ONDANSETRON HYDROCHLORIDE
     Indication: VOMITING
  11. FORTECORTIN [Concomitant]
     Active Substance: DEXAMETHASONE
     Indication: NAUSEA
     Route: 065
     Dates: start: 20140103
  12. LYRICA [Concomitant]
     Active Substance: PREGABALIN
     Indication: CONSTIPATION
     Route: 065
     Dates: start: 20131106
  13. PANTOZOL [Concomitant]
     Active Substance: PANTOPRAZOLE SODIUM
     Indication: NAUSEA
     Route: 065
     Dates: start: 20130918
  14. MCP DROPS [Concomitant]
     Indication: NAUSEA
     Route: 048
     Dates: start: 20131015, end: 20131121
  15. REKAWAN [Concomitant]
     Active Substance: POTASSIUM CHLORIDE
     Indication: BLOOD POTASSIUM DECREASED
     Route: 065
     Dates: start: 20131111, end: 20131113
  16. PALLADON [Concomitant]
     Active Substance: HYDROMORPHONE
     Route: 065
     Dates: start: 20140218, end: 20140218
  17. MORPHINE [Concomitant]
     Active Substance: MORPHINE
     Route: 065
     Dates: start: 20140218, end: 20140218
  18. FOLINIC ACID [Suspect]
     Active Substance: LEUCOVORIN
     Indication: COLORECTAL CANCER
     Dosage: DAY 1,8,15,22,29,36
     Route: 042
     Dates: start: 20131211, end: 20140131
  19. NOVAMINSULFON [Concomitant]
     Active Substance: METAMIZOLE
     Indication: PAIN
     Route: 065
     Dates: start: 20130918, end: 20140218
  20. VERGENTAN [Concomitant]
     Indication: NAUSEA
     Route: 065
     Dates: start: 20131015, end: 20131121
  21. VERGENTAN [Concomitant]
     Indication: VOMITING
  22. REKAWAN [Concomitant]
     Active Substance: POTASSIUM CHLORIDE
     Route: 065
     Dates: start: 20131211
  23. CAPECITABINE. [Suspect]
     Active Substance: CAPECITABINE
     Indication: COLORECTAL CANCER
     Dosage: DAY 1-14
     Route: 042
     Dates: start: 20131014, end: 20131027
  24. LYRICA [Concomitant]
     Active Substance: PREGABALIN
     Route: 065
     Dates: start: 20131108
  25. NITROFURANTOIN. [Concomitant]
     Active Substance: NITROFURANTOIN
     Indication: URINARY TRACT INFECTION
     Route: 065
     Dates: start: 20131106, end: 20131111
  26. AMOXICILLIN. [Concomitant]
     Active Substance: AMOXICILLIN
     Route: 065
     Dates: start: 20131113, end: 20131118
  27. ZOFRAN [Concomitant]
     Active Substance: ONDANSETRON HYDROCHLORIDE
     Indication: NAUSEA
     Route: 065
     Dates: start: 20131022, end: 20140218
  28. CLEXANE [Concomitant]
     Active Substance: ENOXAPARIN SODIUM
     Route: 065
     Dates: start: 20131111, end: 20131121

REACTIONS (11)
  - Acute kidney injury [Fatal]
  - Malignant neoplasm progression [Not Recovered/Not Resolved]
  - Urinary tract infection [Recovered/Resolved]
  - Hypoglycaemia [Unknown]
  - Pain [Recovered/Resolved]
  - Pyrexia [Unknown]
  - Hepatic failure [Not Recovered/Not Resolved]
  - Hypotonia [Not Recovered/Not Resolved]
  - Renal failure [Not Recovered/Not Resolved]
  - Multi-organ failure [Fatal]
  - Sepsis [Fatal]

NARRATIVE: CASE EVENT DATE: 20131106
